FAERS Safety Report 18590925 (Version 6)
Quarter: 2020Q4

REPORT INFORMATION
  Report Type: Spontaneous
  Country: US (occurrence: US)
  Receive Date: 20201208
  Receipt Date: 20201231
  Transmission Date: 20210114
  Serious: Yes (Other)
  Sender: FDA-Public Use
  Company Number: US-CELGENEUS-USA-20201201484

PATIENT
  Sex: Male
  Weight: 89.89 kg

DRUGS (2)
  1. IDHIFA [Suspect]
     Active Substance: ENASIDENIB MESYLATE
     Indication: ACUTE MYELOID LEUKAEMIA
     Dosage: 100 MILLIGRAM
     Route: 048
     Dates: start: 20201118
  2. CEPHALEXIN. [Concomitant]
     Active Substance: CEPHALEXIN
     Indication: PRODUCT USED FOR UNKNOWN INDICATION
     Dosage: 1000 MILLIGRAM
     Route: 065

REACTIONS (8)
  - Cough [Unknown]
  - Weight increased [Unknown]
  - Full blood count decreased [Recovering/Resolving]
  - Contusion [Unknown]
  - Decreased appetite [Unknown]
  - Fatigue [Not Recovered/Not Resolved]
  - Vomiting [Unknown]
  - Nausea [Not Recovered/Not Resolved]

NARRATIVE: CASE EVENT DATE: 2020
